FAERS Safety Report 21136286 (Version 5)
Quarter: 2022Q3

REPORT INFORMATION
  Report Type: Spontaneous
  Country: NL (occurrence: None)
  Receive Date: 20220727
  Receipt Date: 20220916
  Transmission Date: 20221027
  Serious: Yes (Death, Life-Threatening, Hospitalization)
  Sender: FDA-Public Use
  Company Number: NL-ROCHE-3142746

PATIENT
  Age: 58 Year
  Sex: Female
  Weight: 64 kg

DRUGS (11)
  1. TECENTRIQ [Suspect]
     Active Substance: ATEZOLIZUMAB
     Indication: Hepatocellular carcinoma
     Dosage: STARTED CYCLE 1
     Route: 042
     Dates: start: 20220614
  2. AVASTIN [Suspect]
     Active Substance: BEVACIZUMAB
     Indication: Hepatocellular carcinoma
     Dosage: STARTED CYCLE 1, AVASTIN 1
     Route: 042
     Dates: start: 20220614, end: 20220712
  3. SPIRONOLACTONE [Concomitant]
     Active Substance: SPIRONOLACTONE
     Dosage: 1D1
  4. URSODIOL [Concomitant]
     Active Substance: URSODIOL
     Dosage: 2D
  5. FENTANYL [Concomitant]
     Active Substance: FENTANYL
     Dosage: 100 UG
  6. ACETAMINOPHEN [Concomitant]
     Active Substance: ACETAMINOPHEN
     Dosage: ZN
  7. PANTOPRAZOLE SODIUM [Concomitant]
     Active Substance: PANTOPRAZOLE SODIUM
     Dosage: 1D
  8. MOVICOLON [Concomitant]
     Active Substance: POLYETHYLENE GLYCOL 3350\POTASSIUM CHLORIDE\SODIUM BICARBONATE\SODIUM CHLORIDE
     Dosage: 1D1
  9. EUTHYROX [Concomitant]
     Active Substance: LEVOTHYROXINE SODIUM
     Dosage: 1D1
  10. PAROXETINE HYDROCHLORIDE [Concomitant]
     Active Substance: PAROXETINE HYDROCHLORIDE
     Dosage: 1D1 EN
  11. TEMAZEPAM [Concomitant]
     Active Substance: TEMAZEPAM
     Dosage: ZN

REACTIONS (14)
  - Ascites [Fatal]
  - Hepatic haemorrhage [Unknown]
  - Anaemia [Recovered/Resolved]
  - Haemorrhage [Recovering/Resolving]
  - Pyrexia [Unknown]
  - Haematoma infection [Unknown]
  - Hepatic failure [Unknown]
  - Hepatic cirrhosis [Unknown]
  - Hallucination [Unknown]
  - Infection [Unknown]
  - International normalised ratio [Unknown]
  - Hepatic lesion [Unknown]
  - Hyperbilirubinaemia [Unknown]
  - Off label use [Unknown]

NARRATIVE: CASE EVENT DATE: 20220614
